FAERS Safety Report 4433487-9 (Version None)
Quarter: 2004Q3

REPORT INFORMATION
  Report Type: 
  Country: None (occurrence: None)
  Receive Date: 20040826
  Receipt Date: 20040823
  Transmission Date: 20050211
  Serious: Yes (Other)
  Sender: FDA-Public Use
  Company Number: GB-JNJFOC-20040804528

PATIENT
  Sex: Female

DRUGS (5)
  1. REMICADE [Suspect]
     Indication: PYODERMA GANGRENOSUM
     Route: 042
  2. REMICADE [Suspect]
     Indication: CROHN'S DISEASE
     Route: 042
  3. AZATHIOPRINE [Concomitant]
  4. ACETAMINOPHEN [Concomitant]
  5. CODEINE SUL TAB [Concomitant]

REACTIONS (2)
  - HEADACHE [None]
  - INFUSION RELATED REACTION [None]
